FAERS Safety Report 6260030-4 (Version None)
Quarter: 2009Q3

REPORT INFORMATION
  Report Type: 
  Country: None (occurrence: None)
  Receive Date: 20090708
  Receipt Date: 20090625
  Transmission Date: 20100115
  Serious: Yes (Disabling)
  Sender: FDA-Public Use
  Company Number: US-ELI_LILLY_AND_COMPANY-US200906006118

PATIENT
  Sex: Female

DRUGS (3)
  1. CYMBALTA [Suspect]
     Dosage: 90 MG, UNK
     Dates: start: 20040101, end: 20090501
  2. CYMBALTA [Suspect]
     Dosage: 60 MG, UNK
     Dates: start: 20090501, end: 20090617
  3. CYMBALTA [Suspect]
     Dosage: 30 MG, DAILY (1/D)
     Dates: start: 20090618

REACTIONS (3)
  - AMNESIA [None]
  - DISABILITY [None]
  - DRUG INEFFECTIVE [None]
